FAERS Safety Report 9148788 (Version 1)
Quarter: 2013Q1

REPORT INFORMATION
  Report Type: Spontaneous
  Country: NO (occurrence: None)
  Receive Date: 20130211
  Receipt Date: 20130211
  Transmission Date: 20140127
  Serious: Yes (Death, Other)
  Sender: FDA-Public Use
  Company Number: 2013PI001877

PATIENT
  Age: 77 Year
  Sex: Female

DRUGS (2)
  1. AMLODIPINE [Suspect]
     Indication: COMPLETED SUICIDE
  2. BENZODIAZEPINE DERIVATIVES [Suspect]
     Indication: COMPLETED SUICIDE

REACTIONS (4)
  - Coma [None]
  - Renal failure acute [None]
  - Circulatory collapse [None]
  - Completed suicide [None]
